FAERS Safety Report 8270453-X (Version None)
Quarter: 2012Q1

REPORT INFORMATION
  Report Type: 
  Country: None (occurrence: None)
  Receive Date: 20120327
  Receipt Date: 20100201
  Transmission Date: 20120608
  Serious: Yes (Hospitalization)
  Sender: FDA-Public Use
  Company Number: PHHY2010US05708

PATIENT
  Age: 28 Year
  Sex: Male

DRUGS (1)
  1. GLEEVEC [Suspect]
     Dosage: UNK

REACTIONS (3)
  - NAUSEA [None]
  - VOMITING [None]
  - GASTROINTESTINAL PERFORATION [None]
